FAERS Safety Report 23427431 (Version 1)
Quarter: 2024Q1

REPORT INFORMATION
  Report Type: Spontaneous
  Country: IT (occurrence: IT)
  Receive Date: 20240122
  Receipt Date: 20240122
  Transmission Date: 20240410
  Serious: Yes (Other)
  Sender: FDA-Public Use
  Company Number: IT-SUN PHARMACEUTICAL INDUSTRIES LTD-2024R1-427558

PATIENT
  Age: 39 Year
  Sex: Male

DRUGS (4)
  1. FLUTICASONE [Suspect]
     Active Substance: FLUTICASONE
     Indication: Asthma
     Dosage: 184 MICROGRAM
     Route: 065
  2. PREDNISONE [Suspect]
     Active Substance: PREDNISONE
     Indication: Asthma
     Dosage: 25 MILLIGRAM, DAILY
     Route: 048
  3. TIOTROPIUM [Suspect]
     Active Substance: TIOTROPIUM
     Indication: Asthma
     Dosage: 2.5 MICROGRAM, DAILY
  4. VILANTEROL [Suspect]
     Active Substance: VILANTEROL
     Indication: Asthma
     Dosage: 22 MICROGRAM
     Route: 065

REACTIONS (1)
  - Monkeypox [Unknown]
